FAERS Safety Report 9276550 (Version 2)
Quarter: 2013Q2

REPORT INFORMATION
  Report Type: Spontaneous
  Country: DE (occurrence: DE)
  Receive Date: 20130507
  Receipt Date: 20130515
  Transmission Date: 20140414
  Serious: Yes (Death, Hospitalization)
  Sender: FDA-Public Use
  Company Number: DE-JNJFOC-20130417738

PATIENT
  Age: 84 Year
  Sex: Female

DRUGS (3)
  1. FENTANYL [Suspect]
     Indication: PAIN
     Route: 062
  2. FENTANYL [Suspect]
     Indication: PAIN
     Route: 062
  3. NALOXONE [Concomitant]
     Route: 065

REACTIONS (6)
  - Renal failure [Fatal]
  - Overdose [Fatal]
  - Hyperkalaemia [Fatal]
  - Tachyarrhythmia [Unknown]
  - Pulmonary sepsis [Unknown]
  - Myoclonus [Unknown]
